FAERS Safety Report 8382792-2 (Version None)
Quarter: 2012Q2

REPORT INFORMATION
  Report Type: 
  Country: None (occurrence: None)
  Receive Date: 20120524
  Receipt Date: 20120516
  Transmission Date: 20120825
  Serious: Yes (Hospitalization, Other)
  Sender: FDA-Public Use
  Company Number: FR-PFIZER INC-2012122206

PATIENT
  Age: 70 Year
  Sex: Male
  Weight: 65 kg

DRUGS (17)
  1. FLUOROURACIL [Suspect]
     Indication: PANCREATIC CARCINOMA
     Dosage: 3000 MG/M2, CYCLIC
     Dates: start: 20120223
  2. METHYLPREDNISOLONE [Suspect]
     Dosage: 60 MG, CYCLIC
     Route: 042
     Dates: start: 20120316
  3. LEUCOVORIN CALCIUM [Suspect]
     Dosage: 400 MG/M2, CYCLIC
     Dates: start: 20120316
  4. MORPHINE [Concomitant]
     Dosage: UNK
  5. LOVENOX [Concomitant]
     Dosage: 0.4 ML, UNK
  6. LEUCOVORIN CALCIUM [Suspect]
     Indication: PANCREATIC CARCINOMA
     Dosage: 400 MG/M2, CYCLIC
     Dates: start: 20120223
  7. IRBESARTAN [Concomitant]
     Dosage: UNK
  8. FLUOROURACIL [Suspect]
     Dosage: 3000 MG/M2, CYCLIC
     Dates: start: 20120316
  9. ESIDRIX [Concomitant]
     Dosage: UNK
  10. BISOPROLOL FUMARATE [Concomitant]
     Dosage: UNK
  11. OXALIPLATIN [Suspect]
     Indication: PANCREATIC CARCINOMA
     Dosage: 100 MG/M2, CYCLIC
     Dates: start: 20120223
  12. METHYLPREDNISOLONE [Suspect]
     Indication: PANCREATIC CARCINOMA
     Dosage: 60 MG, CYCLIC
     Route: 042
     Dates: start: 20120223
  13. ATORVASTATIN [Concomitant]
     Dosage: 40 MG, 1X/DAY
     Route: 048
  14. REPAGLINIDE [Concomitant]
     Dosage: UNK
  15. OXALIPLATIN [Suspect]
     Dosage: 100 MG/M2, CYCLIC
     Dates: start: 20120316
  16. PARACETAMOL [Concomitant]
     Dosage: UNK
  17. NICARDIPINE [Concomitant]
     Dosage: UNK

REACTIONS (6)
  - PYREXIA [None]
  - MUCOSAL INFLAMMATION [None]
  - PANCYTOPENIA [None]
  - NEUTROPENIA [None]
  - THROMBOCYTOPENIA [None]
  - PAIN [None]
